FAERS Safety Report 7094321-4 (Version None)
Quarter: 2010Q4

REPORT INFORMATION
  Report Type: 
  Country: None (occurrence: None)
  Receive Date: 20101110
  Receipt Date: 20101029
  Transmission Date: 20110411
  Serious: Yes (Hospitalization, Other)
  Sender: FDA-Public Use
  Company Number: JP-PFIZER INC-2010134054

PATIENT
  Age: 66 Year
  Sex: Male
  Weight: 70 kg

DRUGS (1)
  1. LIPITOR [Suspect]
     Indication: HYPERCHOLESTEROLAEMIA
     Dosage: 5 MG, UNKNOWN/D
     Route: 048
     Dates: start: 20100913, end: 20101012

REACTIONS (6)
  - ABDOMINAL DISCOMFORT [None]
  - BILE DUCT CANCER [None]
  - DYSPEPSIA [None]
  - JAUNDICE [None]
  - MALAISE [None]
  - NAUSEA [None]
